FAERS Safety Report 4505203-3 (Version None)
Quarter: 2004Q4

REPORT INFORMATION
  Report Type: 
  Country: None (occurrence: None)
  Receive Date: 20041118
  Receipt Date: 20041118
  Transmission Date: 20050328
  Serious: Yes (Hospitalization)
  Sender: FDA-Public Use
  Company Number: None

PATIENT
  Age: 65 Year
  Sex: Female
  Weight: 109 kg

DRUGS (2)
  1. AVASTIN [Suspect]
  2. COUMADIN [Suspect]
     Indication: DEEP VEIN THROMBOSIS
     Dosage: 2.5 MG DAILY

REACTIONS (2)
  - ANAEMIA [None]
  - LOWER GASTROINTESTINAL HAEMORRHAGE [None]
